FAERS Safety Report 9146821 (Version 1)
Quarter: 2013Q1

REPORT INFORMATION
  Report Type: Spontaneous
  Country: US (occurrence: None)
  Receive Date: 20130305
  Receipt Date: 20130305
  Transmission Date: 20140127
  Serious: Yes (Death)
  Sender: FDA-Public Use
  Company Number: None

PATIENT
  Age: 49 Year
  Sex: Female
  Weight: 139 kg

DRUGS (1)
  1. EFFIENT [Suspect]
     Route: 048

REACTIONS (4)
  - Basal ganglia haemorrhage [None]
  - Hypertensive crisis [None]
  - Brain stem haemorrhage [None]
  - Intraventricular haemorrhage [None]
